FAERS Safety Report 8827164 (Version 2)
Quarter: 2014Q1

REPORT INFORMATION
  Report Type: Spontaneous
  Country: FR (occurrence: FR)
  Receive Date: 20121006
  Receipt Date: 20140224
  Transmission Date: 20141002
  Serious: Yes (Other)
  Sender: FDA-Public Use
  Company Number: FR-UCBSA-068099

PATIENT
  Age: 69 Year
  Sex: Male

DRUGS (6)
  1. VIMPAT [Suspect]
     Indication: EPILEPSY
     Dosage: UNKNOWN DOSE
  2. VIMPAT [Suspect]
     Indication: EPILEPSY
     Route: 048
     Dates: end: 20120930
  3. KEPPRA [Concomitant]
  4. ZONEGRAN [Concomitant]
     Indication: EPILEPSY
     Route: 048
  5. DEPAKINE [Concomitant]
  6. SOLUMEDROL [Concomitant]

REACTIONS (1)
  - Encephalopathy [Recovered/Resolved]
